FAERS Safety Report 24986340 (Version 1)
Quarter: 2025Q1

REPORT INFORMATION
  Report Type: Spontaneous
  Country: US (occurrence: None)
  Receive Date: 20250218
  Receipt Date: 20250218
  Transmission Date: 20250409
  Serious: No
  Sender: FDA-CTU
  Company Number: None

PATIENT
  Age: 22 Year
  Sex: Female
  Weight: 56.25 kg

DRUGS (1)
  1. PHENELZINE [Suspect]
     Active Substance: PHENELZINE
     Indication: Social anxiety disorder
     Route: 048
     Dates: start: 20250118, end: 20250119

REACTIONS (1)
  - Ventricular extrasystoles [None]

NARRATIVE: CASE EVENT DATE: 20250119
